FAERS Safety Report 22038081 (Version 1)
Quarter: 2023Q1

REPORT INFORMATION
  Report Type: Spontaneous
  Country: US (occurrence: US)
  Receive Date: 20230227
  Receipt Date: 20230227
  Transmission Date: 20230417
  Serious: No
  Sender: FDA-Public Use
  Company Number: US-IGSA-BIG0018140

PATIENT
  Sex: Female
  Weight: 86.6 kg

DRUGS (23)
  1. PROLASTIN-C LIQUID [Suspect]
     Active Substance: .ALPHA.1-PROTEINASE INHIBITOR HUMAN
     Indication: Alpha-1 antitrypsin deficiency
     Dosage: 60 MILLIGRAM/KILOGRAM, Q.WK.
     Route: 042
     Dates: start: 20190521
  2. ADVAIR HFA [Concomitant]
     Active Substance: FLUTICASONE PROPIONATE\SALMETEROL XINAFOATE
  3. ALBUTEROL SULFATE [Concomitant]
     Active Substance: ALBUTEROL SULFATE
  4. OXYMETAZOLINE HYDROCHLORIDE [Concomitant]
     Active Substance: OXYMETAZOLINE HYDROCHLORIDE
  5. DALIRESP [Concomitant]
     Active Substance: ROFLUMILAST
  6. DULCOLAX (BISACODYL) [Concomitant]
     Active Substance: BISACODYL
  7. IBUPROFEN [Concomitant]
     Active Substance: IBUPROFEN
  8. KLOR-CON [Concomitant]
     Active Substance: POTASSIUM CHLORIDE
  9. LASIX [Concomitant]
     Active Substance: FUROSEMIDE
  10. MIRALAX [Concomitant]
     Active Substance: POLYETHYLENE GLYCOL 3350
  11. VITAMINS [Concomitant]
     Active Substance: VITAMINS
  12. OMEPRAZOLE [Concomitant]
     Active Substance: OMEPRAZOLE
  13. PRAMIPEXOLE [Concomitant]
     Active Substance: PRAMIPEXOLE
  14. PROAIR HFA [Concomitant]
     Active Substance: ALBUTEROL SULFATE
  15. SINGULAIR [Concomitant]
     Active Substance: MONTELUKAST SODIUM
  16. SPIRIVA [Concomitant]
     Active Substance: TIOTROPIUM BROMIDE MONOHYDRATE
  17. SUDAFED XYLO [Concomitant]
  18. TESSALON [Concomitant]
     Active Substance: BENZONATATE
  19. VENTOLIN [Concomitant]
     Active Substance: ALBUTEROL SULFATE
  20. VERAMYST [Concomitant]
     Active Substance: FLUTICASONE FUROATE
  21. VITAMIN B12 [Concomitant]
     Active Substance: CYANOCOBALAMIN
  22. VITAMIN C [Concomitant]
     Active Substance: ASCORBIC ACID
  23. ZINC [Concomitant]
     Active Substance: ZINC

REACTIONS (4)
  - Pyrexia [Not Recovered/Not Resolved]
  - Chills [Not Recovered/Not Resolved]
  - Chest discomfort [Not Recovered/Not Resolved]
  - Malaise [Not Recovered/Not Resolved]
